FAERS Safety Report 5170299-5 (Version None)
Quarter: 2006Q4

REPORT INFORMATION
  Report Type: 
  Country: None (occurrence: None)
  Receive Date: 20061204
  Receipt Date: 20061127
  Transmission Date: 20070319
  Serious: Yes (Other)
  Sender: FDA-Public Use
  Company Number: GXKR2006IT07678

PATIENT
  Age: 66 Year
  Sex: Male

DRUGS (5)
  1. PAMIDRONATE (NGX) (PAMIDRONATE) [Suspect]
     Indication: MULTIPLE MYELOMA
     Dosage: 90 MG, QMO, INTRAVENOUS
     Route: 042
  2. PREDNISONE [Suspect]
     Indication: MULTIPLE MYELOMA
     Dosage: UNK, QMO; ORAL
     Route: 048
  3. MELPHALAN (MELPHALAN) [Suspect]
     Indication: MULTIPLE MYELOMA
     Dosage: UNK, QMO, ORAL
     Route: 048
  4. NAPROXEN [Concomitant]
  5. KETOROLAC TROMETHAMINE [Concomitant]

REACTIONS (5)
  - ACTINOMYCOSIS [None]
  - IMPAIRED HEALING [None]
  - OSTEOMYELITIS [None]
  - OSTEONECROSIS [None]
  - TOOTH EXTRACTION [None]
